FAERS Safety Report 6196243-X (Version None)
Quarter: 2009Q2

REPORT INFORMATION
  Report Type: 
  Country: None (occurrence: None)
  Receive Date: 20090520
  Receipt Date: 20090514
  Transmission Date: 20091009
  Serious: Yes (Other)
  Sender: FDA-Public Use
  Company Number: PHEH2009US04900

PATIENT
  Sex: Female
  Weight: 68.934 kg

DRUGS (9)
  1. TEKTURNA [Suspect]
     Indication: HYPERTENSION
     Dosage: 300 MG DAILY
     Route: 048
     Dates: start: 20090223, end: 20090427
  2. DIOVAN HCT [Concomitant]
     Dosage: 320/25MG DAILY
  3. NADOLOL [Concomitant]
     Dosage: 40 MG, QD
  4. SYNTHROID [Concomitant]
     Dosage: 50 UG, QD
  5. NORVASC [Concomitant]
     Dosage: 2.5 MG, QD
  6. NORVASC [Concomitant]
     Dosage: 10 MG, UNK
  7. LOVAZA [Concomitant]
  8. VITAMIN E [Concomitant]
  9. ACETAMINOPHEN [Concomitant]
     Dosage: UNK

REACTIONS (6)
  - CONFUSIONAL STATE [None]
  - DISORIENTATION [None]
  - DIZZINESS [None]
  - ELECTROENCEPHALOGRAM ABNORMAL [None]
  - EPILEPSY [None]
  - HEADACHE [None]
